FAERS Safety Report 7931860-5 (Version None)
Quarter: 2011Q4

REPORT INFORMATION
  Report Type: 
  Country: None (occurrence: None)
  Receive Date: 20111121
  Receipt Date: 20111109
  Transmission Date: 20120403
  Serious: Yes (Hospitalization)
  Sender: FDA-Public Use
  Company Number: US-BAYER-200943305NA

PATIENT
  Age: 30 Year
  Sex: Female

DRUGS (5)
  1. SINGULAIR [Concomitant]
  2. YASMIN [Suspect]
     Indication: OVARIAN CYST
     Dosage: UNK
     Dates: start: 20060101, end: 20070115
  3. ALLEGRA [Concomitant]
  4. AVELOX [Concomitant]
  5. YAZ [Suspect]
     Indication: OVARIAN CYST
     Dosage: UNK
     Dates: start: 20060101, end: 20070115

REACTIONS (8)
  - PAIN [None]
  - PULMONARY EMBOLISM [None]
  - PULMONARY INFARCTION [None]
  - CHEST PAIN [None]
  - SWELLING [None]
  - HYPOAESTHESIA [None]
  - ASTHENIA [None]
  - FEAR [None]
